FAERS Safety Report 9895613 (Version 2)
Quarter: 2014Q1

REPORT INFORMATION
  Report Type: Spontaneous
  Country: US (occurrence: US)
  Receive Date: 20140213
  Receipt Date: 20140213
  Transmission Date: 20141002
  Serious: No
  Sender: FDA-Public Use
  Company Number: US-BRISTOL-MYERS SQUIBB COMPANY-17385345

PATIENT
  Age: 83 Year
  Sex: Female
  Weight: 61.22 kg

DRUGS (1)
  1. ORENCIA [Suspect]
     Indication: RHEUMATOID ARTHRITIS
     Dosage: RECENT DOSE 11FEB13, 18-FEB-2013
     Route: 042

REACTIONS (4)
  - Pain [Unknown]
  - Pruritus [Unknown]
  - Burning sensation [Unknown]
  - Weight decreased [Unknown]
